FAERS Safety Report 23592037 (Version 1)
Quarter: 2024Q1

REPORT INFORMATION
  Report Type: Spontaneous
  Country: DK (occurrence: DK)
  Receive Date: 20240304
  Receipt Date: 20240304
  Transmission Date: 20240409
  Serious: Yes (Other)
  Sender: FDA-Public Use
  Company Number: None

PATIENT
  Sex: Female

DRUGS (2)
  1. LOSARTAN POTASSIUM [Suspect]
     Active Substance: LOSARTAN POTASSIUM
     Indication: Hypertension
     Dosage: DOSAGE: UNKNOWN
     Route: 048
     Dates: start: 202401
  2. VERAPAMIL [Concomitant]
     Active Substance: VERAPAMIL HYDROCHLORIDE
     Indication: Product used for unknown indication
     Dosage: VERAPAMIL 2CARE4
     Route: 048
     Dates: start: 202401

REACTIONS (1)
  - Haemorrhagic diathesis [Unknown]

NARRATIVE: CASE EVENT DATE: 20240101
